FAERS Safety Report 9532099 (Version 2)
Quarter: 2013Q4

REPORT INFORMATION
  Report Type: Spontaneous
  Country: US (occurrence: US)
  Receive Date: 20130918
  Receipt Date: 20131108
  Transmission Date: 20140711
  Serious: Yes (Hospitalization)
  Sender: FDA-Public Use
  Company Number: US-NOVOPROD-387202

PATIENT
  Age: 12 Year
  Sex: Male
  Weight: 31.75 kg

DRUGS (3)
  1. NOVOLOG [Suspect]
     Indication: TYPE 1 DIABETES MELLITUS
     Dosage: 5-7 UNITS IN THE MORNING THEN 3-5 UNITS BEFORE DINNER
     Route: 058
     Dates: start: 2004
  2. NOVOLIN N [Suspect]
     Indication: TYPE 1 DIABETES MELLITUS
     Dosage: 20 UNITS IN THE MORNING AND 7 UNITS BEFORE DINNER
     Route: 058
     Dates: start: 2004
  3. SYNTHROID [Concomitant]
     Indication: HYPOTHYROIDISM
     Dosage: 0.075 MG, QD
     Dates: start: 201209

REACTIONS (4)
  - Hepatic cirrhosis [Not Recovered/Not Resolved]
  - Autoimmune hepatitis [Not Recovered/Not Resolved]
  - Pancreatitis [Recovered/Resolved]
  - Splenomegaly [Recovering/Resolving]
